FAERS Safety Report 15852610 (Version 4)
Quarter: 2022Q3

REPORT INFORMATION
  Report Type: Spontaneous
  Country: GB (occurrence: GB)
  Receive Date: 20190122
  Receipt Date: 20220927
  Transmission Date: 20221027
  Serious: Yes (Death, Other)
  Sender: FDA-Public Use
  Company Number: GB-BAYER-2018-201114

PATIENT
  Age: 37 Year
  Sex: Male

DRUGS (16)
  1. MOXIFLOXACIN [Suspect]
     Active Substance: MOXIFLOXACIN
     Indication: Disseminated tuberculosis
     Dosage: UNK
     Route: 042
  2. MOXIFLOXACIN [Suspect]
     Active Substance: MOXIFLOXACIN
     Indication: Tuberculosis of central nervous system
  3. ISONIAZID\RIFAMPIN [Suspect]
     Active Substance: ISONIAZID\RIFAMPIN
     Indication: Disseminated tuberculosis
     Dosage: UNK
     Route: 042
  4. ISONIAZID\RIFAMPIN [Suspect]
     Active Substance: ISONIAZID\RIFAMPIN
     Indication: Tuberculosis of central nervous system
  5. ISONIAZID\RIFAMPIN [Suspect]
     Active Substance: ISONIAZID\RIFAMPIN
     Indication: Disseminated tuberculosis
  6. PYRAZINAMIDE [Suspect]
     Active Substance: PYRAZINAMIDE
     Indication: Disseminated tuberculosis
     Dosage: UNK
     Route: 042
  7. PYRAZINAMIDE [Suspect]
     Active Substance: PYRAZINAMIDE
     Indication: Tuberculosis of central nervous system
  8. PYRAZINAMIDE [Suspect]
     Active Substance: PYRAZINAMIDE
     Indication: Tuberculosis
  9. PYRAZINAMIDE [Suspect]
     Active Substance: PYRAZINAMIDE
     Indication: Disseminated tuberculosis
  10. DEXAMETHASONE [Suspect]
     Active Substance: DEXAMETHASONE
     Indication: Tuberculosis of central nervous system
     Dosage: 8 MG, BID DOSE REDUCED
  11. DEXAMETHASONE [Suspect]
     Active Substance: DEXAMETHASONE
     Indication: Immune reconstitution inflammatory syndrome
     Dosage: 8 MG, TID
     Route: 042
  12. DEXAMETHASONE [Suspect]
     Active Substance: DEXAMETHASONE
     Indication: Tuberculosis of central nervous system
     Dosage: 16 MG, BID
     Route: 065
  13. DEXAMETHASONE [Suspect]
     Active Substance: DEXAMETHASONE
     Indication: Tuberculosis of central nervous system
     Dosage: 8 MG, TID
     Route: 042
  14. THALIDOMIDE [Suspect]
     Active Substance: THALIDOMIDE
     Indication: Tuberculosis of central nervous system
     Dosage: UNK
  15. THALIDOMIDE [Suspect]
     Active Substance: THALIDOMIDE
     Indication: Tuberculosis of central nervous system
     Dosage: 200 MG, BID
     Route: 065
  16. THALIDOMIDE [Suspect]
     Active Substance: THALIDOMIDE
     Indication: Tuberculosis of central nervous system
     Dosage: 50 MG, BID
     Route: 065

REACTIONS (14)
  - Cardiac arrest [Fatal]
  - Drug resistance [Unknown]
  - Coma scale abnormal [Fatal]
  - Pupil fixed [Unknown]
  - Immune reconstitution inflammatory syndrome [Fatal]
  - Off label use [None]
  - Tuberculosis of central nervous system [Fatal]
  - Somnolence [Recovered/Resolved]
  - Thalamic infarction [Recovered/Resolved]
  - Brain oedema [Recovered/Resolved]
  - Drug ineffective [Fatal]
  - Hydrocephalus [Recovered/Resolved]
  - Vasculitis [Fatal]
  - Condition aggravated [Fatal]
